FAERS Safety Report 10333659 (Version 2)
Quarter: 2014Q3

REPORT INFORMATION
  Report Type: Spontaneous
  Country: JP (occurrence: JP)
  Receive Date: 20140723
  Receipt Date: 20140723
  Transmission Date: 20150326
  Serious: Yes (Life-Threatening, Other)
  Sender: FDA-Public Use
  Company Number: JP-BEH-2013036372

PATIENT
  Age: 59 Year
  Sex: Female
  Weight: 87 kg

DRUGS (5)
  1. CEFTRIAXONE NA [Concomitant]
     Indication: INFECTION
     Route: 041
     Dates: start: 20130314, end: 20130318
  2. ALBUMINAR 25% [Suspect]
     Active Substance: ALBUMIN (HUMAN)
     Indication: OEDEMA DUE TO HEPATIC DISEASE
     Dosage: 12.5G/50ML
     Route: 042
     Dates: start: 20130313, end: 20130315
  3. FROSEMIDE [Concomitant]
     Route: 042
     Dates: start: 20130314, end: 20130402
  4. VENECTOMIN [Concomitant]
     Active Substance: CANRENOATE POTASSIUM
     Route: 041
     Dates: start: 20130314, end: 20130402
  5. ALBUMINAR 25% [Suspect]
     Active Substance: ALBUMIN (HUMAN)
     Indication: OEDEMA DUE TO HEPATIC DISEASE
     Dosage: 12.5G/50ML
     Route: 042
     Dates: start: 20130313, end: 20130315

REACTIONS (8)
  - Urticaria [Recovered/Resolved]
  - Oxygen saturation decreased [Recovered/Resolved]
  - Pruritus [Recovering/Resolving]
  - Rash [Recovering/Resolving]
  - Pruritus generalised [Recovering/Resolving]
  - Urticaria [Recovered/Resolved]
  - Dyspnoea [Recovered/Resolved]
  - Rash [Recovering/Resolving]

NARRATIVE: CASE EVENT DATE: 20130314
